FAERS Safety Report 24736808 (Version 1)
Quarter: 2024Q4

REPORT INFORMATION
  Report Type: Spontaneous
  Country: US (occurrence: US)
  Receive Date: 20241216
  Receipt Date: 20241216
  Transmission Date: 20250114
  Serious: Yes (Hospitalization)
  Sender: ROCHE
  Company Number: US-ROCHE-10000152726

PATIENT
  Age: 12 Year
  Sex: Female

DRUGS (17)
  1. RITUXIMAB [Suspect]
     Active Substance: RITUXIMAB
     Indication: Marginal zone lymphoma
     Dosage: TOTAL OF SIX WEEKLY DOSES OF 375 MG/M2
     Route: 042
  2. ACETAMINOPHEN [Suspect]
     Active Substance: ACETAMINOPHEN
     Indication: Marginal zone lymphoma
     Route: 065
  3. DIPHENHYDRAMINE [Suspect]
     Active Substance: DIPHENHYDRAMINE
     Indication: Marginal zone lymphoma
     Route: 042
  4. DIPHENHYDRAMINE [Suspect]
     Active Substance: DIPHENHYDRAMINE
     Route: 065
  5. DIPHENHYDRAMINE [Suspect]
     Active Substance: DIPHENHYDRAMINE
     Dosage: NIGHTLY
     Route: 042
  6. HYDROCORTISONE [Suspect]
     Active Substance: HYDROCORTISONE
     Indication: Marginal zone lymphoma
     Route: 065
  7. CETIRIZINE [Concomitant]
     Active Substance: CETIRIZINE HYDROCHLORIDE
     Indication: Urticaria cholinergic
  8. FEXOFENADINE [Concomitant]
     Active Substance: FEXOFENADINE HYDROCHLORIDE
  9. MONTELUKAST [Concomitant]
     Active Substance: MONTELUKAST SODIUM
  10. MOMETASONE [Concomitant]
     Active Substance: MOMETASONE
     Route: 061
  11. RANITIDINE [Concomitant]
     Active Substance: RANITIDINE
  12. CLOBETASOL [Concomitant]
     Active Substance: CLOBETASOL
  13. TRIAMCINOLONE [Concomitant]
     Active Substance: TRIAMCINOLONE
     Dosage: 0.35 CM 3 OF 10 MG/ML WERE RESUMED EVERY 3 MONTHS
     Route: 026
  14. EPIPEN [Concomitant]
     Active Substance: EPINEPHRINE
  15. DOXYCYCLINE [Concomitant]
     Active Substance: DOXYCYCLINE
  16. DOXYCYCLINE [Concomitant]
     Active Substance: DOXYCYCLINE
  17. OMALIZUMAB [Concomitant]
     Active Substance: OMALIZUMAB
     Dosage: 150 MG/ML TWICE FOR A TOTAL OF 300 MG

REACTIONS (1)
  - Anaphylactic reaction [Recovering/Resolving]
